FAERS Safety Report 5939551-7 (Version None)
Quarter: 2008Q4

REPORT INFORMATION
  Report Type: 
  Country: None (occurrence: None)
  Receive Date: 20081029
  Receipt Date: 20081015
  Transmission Date: 20090506
  Serious: Yes (Other)
  Sender: FDA-Public Use
  Company Number: 100#03#2008-05036

PATIENT
  Age: 75 Year
  Sex: Female

DRUGS (11)
  1. CIPROFLOXACIN [Suspect]
     Indication: ARTHRITIS INFECTIVE
  2. CIPROFLOXACIN [Suspect]
     Indication: DEVICE RELATED INFECTION
  3. LINEZOLID [Suspect]
     Indication: ARTHRITIS INFECTIVE
  4. LINEZOLID [Suspect]
     Indication: DEVICE RELATED INFECTION
  5. MEROPENEM (MEROPENEM) [Suspect]
     Indication: ARTHRITIS INFECTIVE
     Dosage: INTRAVENOUS
     Route: 042
  6. MEROPENEM (MEROPENEM) [Suspect]
     Indication: DEVICE RELATED INFECTION
     Dosage: INTRAVENOUS
     Route: 042
  7. PRISTINAMYCIN (PRISTINAMYCIN) [Suspect]
     Indication: ARTHRITIS INFECTIVE
  8. PRISTINAMYCIN (PRISTINAMYCIN) [Suspect]
     Indication: BACTERIAL INFECTION
  9. PRISTINAMYCIN (PRISTINAMYCIN) [Suspect]
     Indication: MULTIPLE-DRUG RESISTANCE
  10. VANCOMYCIN [Suspect]
     Indication: ARTHRITIS INFECTIVE
     Dosage: INTRAVENOUS
     Route: 042
  11. VANCOMYCIN [Suspect]
     Indication: DEVICE RELATED INFECTION
     Dosage: INTRAVENOUS
     Route: 042

REACTIONS (2)
  - MULTIPLE-DRUG RESISTANCE [None]
  - TREATMENT FAILURE [None]
